FAERS Safety Report 23927783 (Version 1)
Quarter: 2024Q2

REPORT INFORMATION
  Report Type: Other
  Country: US (occurrence: None)
  Receive Date: 20240531
  Receipt Date: 20240531
  Transmission Date: 20240716
  Serious: Yes (Life-Threatening, Other)
  Sender: FDA-Public Use
  Company Number: US-ROCHE-3572949

PATIENT

DRUGS (3)
  1. ALTEPLASE [Suspect]
     Active Substance: ALTEPLASE
     Indication: Ischaemic stroke
     Dosage: 10% BOLUS FOLLOWED BY A 90% CONTINUOUS INFUSION. THE MAX BOLUS WAS 9 MG.
     Route: 040
  2. ALTEPLASE [Suspect]
     Active Substance: ALTEPLASE
     Dosage: MAXIMUM DOSE OF 81 MG FOR THE CONTINUOUS INFUSION DOSE.
     Route: 041
  3. TENECTEPLASE [Suspect]
     Active Substance: TENECTEPLASE
     Indication: Ischaemic stroke
     Route: 040

REACTIONS (9)
  - Haemorrhage [Unknown]
  - Haemorrhage intracranial [Unknown]
  - Angioedema [Unknown]
  - Off label use [Unknown]
  - Gingival bleeding [Unknown]
  - Haematemesis [Unknown]
  - Haematuria [Unknown]
  - Haematoma [Unknown]
  - Lip haemorrhage [Unknown]
